FAERS Safety Report 18143729 (Version 1)
Quarter: 2020Q3

REPORT INFORMATION
  Report Type: Spontaneous
  Country: US (occurrence: US)
  Receive Date: 20200813
  Receipt Date: 20200813
  Transmission Date: 20201103
  Serious: Yes (Other)
  Sender: FDA-Public Use
  Company Number: US-SUN PHARMACEUTICAL INDUSTRIES LTD-2019R1-217957

PATIENT
  Age: 53 Year
  Sex: Male

DRUGS (2)
  1. NIVOLUMAB [Suspect]
     Active Substance: NIVOLUMAB
     Indication: CHEMOTHERAPY
     Dosage: 240 MILLIGRAM
     Route: 065
  2. DOCETAXEL. [Suspect]
     Active Substance: DOCETAXEL
     Indication: CHEMOTHERAPY
     Dosage: 30 MILLIGRAM/SQ. METER, WEEKLY
     Route: 065

REACTIONS (2)
  - Lacrimation increased [Recovered/Resolved]
  - Dermatitis [Recovered/Resolved]
